FAERS Safety Report 4411456-2 (Version None)
Quarter: 2004Q3

REPORT INFORMATION
  Report Type: 
  Country: None (occurrence: None)
  Receive Date: 20040727
  Receipt Date: 20040720
  Transmission Date: 20050211
  Serious: Yes (Other)
  Sender: FDA-Public Use
  Company Number: ZONI001470

PATIENT
  Age: 19 Year
  Sex: Female

DRUGS (1)
  1. EXCEGRAN (ZONISAMIDE) [Suspect]
     Indication: EPILEPSY

REACTIONS (1)
  - NEPHROLITHIASIS [None]
